FAERS Safety Report 10034649 (Version 1)
Quarter: 2014Q1

REPORT INFORMATION
  Report Type: Spontaneous
  Country: US (occurrence: None)
  Receive Date: 20140306
  Receipt Date: 20140306
  Transmission Date: 20141002
  Serious: Yes (Other)
  Sender: FDA-Public Use
  Company Number: 163-21880-12113245

PATIENT
  Age: 70 Year
  Sex: Female

DRUGS (12)
  1. REVLIMID (LENALIDOMIDE) (15 MILLIGRAM, CAPSULES) [Suspect]
     Indication: PLASMA CELL MYELOMA
     Dosage: 15 MG, 14 IN 14 D, PO
     Route: 048
     Dates: start: 20121009
  2. AMOXICILLIN (AMOXICILLIN) [Concomitant]
  3. ASPIRIN LOW DOSE (ACETYLSALICYLIC ACID) [Concomitant]
  4. CALCIUM (CALCIUM) [Concomitant]
  5. CLARITHROMYCIN (CLARITHROMYCIN) [Concomitant]
  6. IRON (IRON) [Concomitant]
  7. LANSOPRAZOLE (LANSOPRAZOLE) [Concomitant]
  8. METFORMIN HCL (METFORMIN HYDROCHLORIDE) [Concomitant]
  9. WARFARIN SODIUM (WARFARIN SODIUM) [Concomitant]
  10. BENADRYL (DIPHENHYDRAMINE) [Concomitant]
  11. PACKED RED BLOOD CELLS (RED BLOOD CELLS) [Concomitant]
  12. FERAHEME (FERUMOXYTOL) [Concomitant]

REACTIONS (2)
  - Anaemia [None]
  - Neuropathy peripheral [None]
